FAERS Safety Report 19175571 (Version 1)
Quarter: 2021Q2

REPORT INFORMATION
  Report Type: Other
  Country: TR (occurrence: TR)
  Receive Date: 20210424
  Receipt Date: 20210424
  Transmission Date: 20210717
  Serious: Yes (Other)
  Sender: FDA-Public Use
  Company Number: TR-NUVO PHARMACEUTICALS INC-2109744

PATIENT
  Age: 32 Year
  Sex: Male

DRUGS (1)
  1. NAPROXEN. [Suspect]
     Active Substance: NAPROXEN
     Indication: HEADACHE
     Route: 065

REACTIONS (3)
  - Atrial fibrillation [Recovering/Resolving]
  - Kounis syndrome [Recovering/Resolving]
  - Anaphylactic reaction [Unknown]
